FAERS Safety Report 9340735 (Version 1)
Quarter: 2013Q2

REPORT INFORMATION
  Report Type: Spontaneous
  Country: CN (occurrence: CN)
  Receive Date: 20130610
  Receipt Date: 20130610
  Transmission Date: 20140414
  Serious: Yes (Other)
  Sender: FDA-Public Use
  Company Number: CN-BAXTER-2013BAX020910

PATIENT
  Age: 47 Year
  Sex: Male
  Weight: 53 kg

DRUGS (3)
  1. SODIUM CHLORIDE PHYSIOLOGICAL SOLUTION [Suspect]
     Indication: MEDICATION DILUTION
     Route: 041
     Dates: start: 20121113, end: 20121113
  2. TROXERUTIN [Suspect]
     Indication: PRODUCT USED FOR UNKNOWN INDICATION
     Route: 065
  3. CEREBROPROTEIN HYDROLYSATE [Suspect]
     Indication: PRODUCT USED FOR UNKNOWN INDICATION
     Route: 065

REACTIONS (2)
  - Rash [Recovering/Resolving]
  - Roseola [None]
